FAERS Safety Report 10021882 (Version 3)
Quarter: 2014Q2

REPORT INFORMATION
  Report Type: Spontaneous
  Country: US (occurrence: None)
  Receive Date: 20140313
  Receipt Date: 20140519
  Transmission Date: 20141212
  Serious: Yes (Life-Threatening, Hospitalization)
  Sender: FDA-Public Use
  Company Number: KAD201403-000306

PATIENT
  Age: 54 Year
  Sex: Female

DRUGS (17)
  1. RIBAVIRIN [Suspect]
     Indication: CHRONIC HEPATITIS C
     Route: 048
     Dates: start: 20131010, end: 20131209
  2. BMS 914143 (PEGINTERFERON LAMBDA) [Suspect]
     Indication: CHRONIC HEPATITIS C
     Dosage: 180 MCG/WEEK, SUBCUTANEOUS?
     Route: 058
     Dates: start: 20131010, end: 20131205
  3. PEGINTERFERON ALFA-2A [Suspect]
     Indication: CHRONIC HEPATITIS C
     Dosage: ?
     Route: 058
     Dates: start: 20131010, end: 20131205
  4. TELAPREVIR [Suspect]
     Indication: CHRONIC HEPATITIS C
     Route: 048
     Dates: start: 20131010, end: 20131209
  5. BISOPROLOL (BISOPROLOL FUMARATE) [Concomitant]
  6. GLUCOSE (DEXTROSE) [Concomitant]
  7. INSULIN (INSULIN) [Concomitant]
  8. POTASSIUM CHLORIDE (POTASSIUM CHLORIDE)? [Concomitant]
  9. MAGNESIUM SULFATE (MAGNESIUM SULFATE) [Concomitant]
  10. SODIUM CHLORIDE (SODIUM CHLORIDE) [Concomitant]
  11. PLATYPHYLLINE (PLATYPHYLLINE) [Concomitant]
  12. PAPAVERINE (PAPAVERINE) [Concomitant]
  13. OMEPRAZOLE (OMEPRAZOLE) [Concomitant]
  14. AMOXICILLIN (AMOXICILLIN) [Concomitant]
  15. METRONIDAZOLE (METRONIDAZOLE) [Concomitant]
  16. ALMAGEL (ALUM HYDROXIDE, MAGNESIUM HYDROXIDE) [Concomitant]
  17. ORNITHINE (ORNITHINE) [Concomitant]

REACTIONS (2)
  - Jaundice [None]
  - Cholecystitis acute [None]
